FAERS Safety Report 8732489 (Version 2)
Quarter: 2012Q4

REPORT INFORMATION
  Report Type: 
  Country: US (occurrence: US)
  Receive Date: 20120820
  Receipt Date: 20121108
  Transmission Date: 20130627
  Serious: Yes (Other)
  Sender: FDA-Public Use
  Company Number: PHEH2012US015946

PATIENT
  Age: 32 Year
  Sex: Female
  Weight: 65.31 kg

DRUGS (1)
  1. GILENYA [Suspect]
     Indication: MULTIPLE SCLEROSIS
     Dosage: 0.5 mg, QD
     Route: 048
     Dates: start: 20111007, end: 20120722

REACTIONS (2)
  - Central nervous system lesion [Recovered/Resolved with Sequelae]
  - Rebound effect [Recovered/Resolved]
